FAERS Safety Report 22132274 (Version 1)
Quarter: 2023Q1

REPORT INFORMATION
  Report Type: Spontaneous
  Country: CN (occurrence: CN)
  Receive Date: 20230323
  Receipt Date: 20230323
  Transmission Date: 20230417
  Serious: Yes (Other)
  Sender: FDA-Public Use
  Company Number: CN-002147023-NVSC2023CN030428

PATIENT
  Age: 11 Year
  Sex: Male

DRUGS (2)
  1. ZYKADIA [Suspect]
     Active Substance: CERITINIB
     Indication: Lung adenocarcinoma
     Dosage: 450 MG, QD (WITH FOOD)
     Route: 048
     Dates: start: 20201119
  2. RIVAROXABAN [Concomitant]
     Active Substance: RIVAROXABAN
     Indication: Lung adenocarcinoma
     Dosage: UNK
     Route: 065

REACTIONS (6)
  - Transaminases increased [Recovered/Resolved]
  - Vomiting [Recovering/Resolving]
  - Pyrexia [Recovering/Resolving]
  - Diarrhoea [Recovering/Resolving]
  - Off label use [Unknown]
  - Therapy partial responder [Unknown]
